FAERS Safety Report 25503591 (Version 22)
Quarter: 2025Q4

REPORT INFORMATION
  Report Type: Report from Study
  Country: EU (occurrence: EU)
  Receive Date: 20250702
  Receipt Date: 20251112
  Transmission Date: 20260118
  Serious: Yes (Hospitalization)
  Sender: ABBVIE
  Company Number: EU-ABBVIE-6348324

PATIENT
  Age: 73 Year
  Sex: Male

DRUGS (8)
  1. FOSCARBIDOPA\FOSLEVODOPA [Suspect]
     Active Substance: FOSCARBIDOPA\FOSLEVODOPA
     Indication: Parkinson^s disease
     Route: 058
     Dates: start: 20241125, end: 202507
  2. FOSCARBIDOPA\FOSLEVODOPA [Suspect]
     Active Substance: FOSCARBIDOPA\FOSLEVODOPA
     Dosage: DOSE ADJUSTED?BASAL SPEED: 0.21 ML/H, HIGH SPEED: 0.23 ML/H AND THE NOCTURNAL LOW SPEED WAS MAINT...
     Route: 058
     Dates: start: 202507
  3. FOSCARBIDOPA\FOSLEVODOPA [Suspect]
     Active Substance: FOSCARBIDOPA\FOSLEVODOPA
     Dosage: BASAL RATE 0.25 ML/H AND HIGH VELOCITY 0.27 ML/H, LOW AS THE CURRENT DOSE
     Route: 058
     Dates: start: 2025, end: 2025
  4. FOSCARBIDOPA\FOSLEVODOPA [Suspect]
     Active Substance: FOSCARBIDOPA\FOSLEVODOPA
     Dosage: CRM: BASELINE 0.32 ML/H AND HIGH 0.34 ML/H
     Route: 058
     Dates: start: 2025, end: 2025
  5. FOSCARBIDOPA\FOSLEVODOPA [Suspect]
     Active Substance: FOSCARBIDOPA\FOSLEVODOPA
     Dosage: DOSE ADJUSTED
     Route: 058
     Dates: start: 2025, end: 2025
  6. QUETIAPINE [Concomitant]
     Active Substance: QUETIAPINE
     Indication: Product used for unknown indication
     Dosage: INCREASE THE NOCTURNAL DOSE IF NECESSARY, WITH HALF TABLET
     Route: 048
     Dates: start: 202507
  7. QUETIAPINE [Concomitant]
     Active Substance: QUETIAPINE
     Indication: Product used for unknown indication
     Dosage: LAST ADMIN DATE: JUL 2025
     Route: 048
     Dates: start: 20250712
  8. SINEMET [Concomitant]
     Active Substance: CARBIDOPA\LEVODOPA
     Indication: Product used for unknown indication
     Dosage: 1 TABLET AT BEDTIME

REACTIONS (17)
  - Respiratory distress [Recovering/Resolving]
  - Nervousness [Recovered/Resolved]
  - Mobility decreased [Unknown]
  - Hallucination, visual [Recovered/Resolved]
  - Hallucination [Recovered/Resolved]
  - Confusional state [Unknown]
  - Insomnia [Not Recovered/Not Resolved]
  - Fall [Recovered/Resolved]
  - Obsessive thoughts [Not Recovered/Not Resolved]
  - Hip fracture [Recovering/Resolving]
  - Discomfort [Unknown]
  - Hallucination [Recovered/Resolved]
  - Bronchitis chronic [Unknown]
  - Nervousness [Recovered/Resolved]
  - Respiratory failure [Recovered/Resolved]
  - Freezing phenomenon [Not Recovered/Not Resolved]
  - Off label use [Unknown]

NARRATIVE: CASE EVENT DATE: 20250101
